FAERS Safety Report 5462179-2 (Version None)
Quarter: 2007Q3

REPORT INFORMATION
  Report Type: 
  Country: None (occurrence: None)
  Receive Date: 20070920
  Receipt Date: 20070516
  Transmission Date: 20080115
  Serious: No
  Sender: FDA-Public Use
  Company Number: A0651348A

PATIENT
  Sex: Female

DRUGS (1)
  1. ABREVA [Suspect]
     Dates: start: 20070514

REACTIONS (3)
  - HYPERSENSITIVITY [None]
  - LIP SWELLING [None]
  - URTICARIA [None]
